FAERS Safety Report 16956342 (Version 6)
Quarter: 2022Q1

REPORT INFORMATION
  Report Type: Spontaneous
  Country: US (occurrence: US)
  Receive Date: 20191024
  Receipt Date: 20220331
  Transmission Date: 20220424
  Serious: Yes (Other)
  Sender: FDA-Public Use
  Company Number: US-PFIZER INC-2018340713

PATIENT
  Age: 42 Year
  Sex: Female
  Weight: 116 kg

DRUGS (2)
  1. TOVIAZ [Suspect]
     Active Substance: FESOTERODINE FUMARATE
     Indication: Hypertonic bladder
     Dosage: 8 MG, DAILY
     Dates: start: 2002
  2. TOVIAZ [Suspect]
     Active Substance: FESOTERODINE FUMARATE
     Indication: Bladder spasm
     Dosage: 4 MG, 2X/DAY
     Route: 048
     Dates: start: 2018

REACTIONS (6)
  - Drug ineffective [Not Recovered/Not Resolved]
  - Enuresis [Recovering/Resolving]
  - Urinary tract infection [Unknown]
  - Pollakiuria [Unknown]
  - Pain [Unknown]
  - Off label use [Unknown]

NARRATIVE: CASE EVENT DATE: 20080101
